FAERS Safety Report 5600362-3 (Version None)
Quarter: 2008Q1

REPORT INFORMATION
  Report Type: 
  Country: None (occurrence: None)
  Receive Date: 20080123
  Receipt Date: 20080116
  Transmission Date: 20080703
  Serious: No
  Sender: FDA-Public Use
  Company Number: US-BAXTER-2008BH000468

PATIENT
  Age: 71 Year
  Sex: Male
  Weight: 113 kg

DRUGS (2)
  1. HEPARIN SODIUM [Suspect]
     Indication: ANTICOAGULANT THERAPY
     Route: 042
     Dates: start: 20080116, end: 20080116
  2. HEPARIN SODIUM [Suspect]
     Route: 042
     Dates: start: 20080116, end: 20080116

REACTIONS (2)
  - CARDIAC ARREST [None]
  - HYPOTENSION [None]
